FAERS Safety Report 7400505-5 (Version None)
Quarter: 2011Q1

REPORT INFORMATION
  Report Type: 
  Country: None (occurrence: None)
  Receive Date: 20110329
  Receipt Date: 20110315
  Transmission Date: 20110831
  Serious: Yes (Hospitalization)
  Sender: FDA-Public Use
  Company Number: 029540

PATIENT
  Sex: Female
  Weight: 90.7194 kg

DRUGS (3)
  1. MESALAMINE [Concomitant]
  2. CIMZIA [Suspect]
     Indication: CROHN'S DISEASE
     Dosage: (400 MG, FREQUENCY NOT SPECIFIED SUBCUTANEOUS)
     Route: 058
     Dates: start: 20090701
  3. ACETAMINOPHEN [Concomitant]

REACTIONS (1)
  - BRONCHITIS [None]
